FAERS Safety Report 6075927-8 (Version None)
Quarter: 2009Q1

REPORT INFORMATION
  Report Type: 
  Country: None (occurrence: None)
  Receive Date: 20090212
  Receipt Date: 20090202
  Transmission Date: 20090719
  Serious: Yes (Other)
  Sender: FDA-Public Use
  Company Number: BR-PFIZER INC-2008101106

PATIENT

DRUGS (2)
  1. FRONTAL [Suspect]
     Indication: INSOMNIA
     Route: 048
     Dates: start: 20081101
  2. METICORTEN [Concomitant]
     Route: 065

REACTIONS (13)
  - ASTHENIA [None]
  - DRUG INEFFECTIVE [None]
  - DYSKINESIA [None]
  - DYSPNOEA [None]
  - FEELING DRUNK [None]
  - HEADACHE [None]
  - HEART RATE INCREASED [None]
  - HYPERHIDROSIS [None]
  - MALAISE [None]
  - MUSCULAR WEAKNESS [None]
  - PALPITATIONS [None]
  - TREMOR [None]
  - VISUAL IMPAIRMENT [None]
